FAERS Safety Report 22519038 (Version 1)
Quarter: 2023Q2

REPORT INFORMATION
  Report Type: Report from Study
  Country: US (occurrence: None)
  Receive Date: 20230605
  Receipt Date: 20230605
  Transmission Date: 20230722
  Serious: Yes (Death, Hospitalization)
  Sender: FDA-Public Use
  Company Number: US-ROCHE-3361565

PATIENT
  Sex: Male
  Weight: 60 kg

DRUGS (1)
  1. VISMODEGIB [Suspect]
     Active Substance: VISMODEGIB
     Indication: Chondrosarcoma
     Dosage: CYCLE=28 DAYS?LAST ADMINISTERED DATE: 14/MAR/2011
     Route: 048

REACTIONS (3)
  - Sepsis [Fatal]
  - Abdominal pain [Recovered/Resolved]
  - Hypercalcaemia [Recovered/Resolved]

NARRATIVE: CASE EVENT DATE: 20110311
